FAERS Safety Report 7122722-4 (Version None)
Quarter: 2010Q4

REPORT INFORMATION
  Report Type: 
  Country: None (occurrence: None)
  Receive Date: 20101124
  Receipt Date: 20101115
  Transmission Date: 20110411
  Serious: Yes (Other)
  Sender: FDA-Public Use
  Company Number: US-PFIZER INC-US-WYE-H18203110

PATIENT
  Sex: Female
  Weight: 76.27 kg

DRUGS (8)
  1. EFFEXOR XR [Suspect]
     Indication: DEPRESSION
     Dosage: 225 MG, 1X/DAY
     Route: 048
  2. EFFEXOR XR [Suspect]
     Indication: SUICIDAL IDEATION
  3. VITAMINS [Concomitant]
     Dosage: UNK
  4. NORETHINDRONE-MESTRANOL [Concomitant]
     Indication: MENSTRUATION IRREGULAR
     Dosage: UNK
     Dates: start: 20090101, end: 20100101
  5. YAZ [Concomitant]
     Indication: MENSTRUATION IRREGULAR
     Dosage: UNK
  6. LORATADINE [Concomitant]
     Indication: EOSINOPHILIA
     Dosage: 10 MG, 1X/DAY AS NEEDED
     Dates: start: 20100416
  7. LORATADINE [Concomitant]
     Indication: HYPERSENSITIVITY
  8. IBUPROFEN [Concomitant]
     Indication: DYSMENORRHOEA
     Dosage: 600 MG, 3X/DAY AS NEEDED
     Dates: start: 20100409

REACTIONS (7)
  - ASTHENIA [None]
  - DEPRESSION [None]
  - DRUG EFFECT DECREASED [None]
  - PHOTOPHOBIA [None]
  - SINUS HEADACHE [None]
  - SUICIDAL IDEATION [None]
  - VISUAL IMPAIRMENT [None]
